FAERS Safety Report 9069360 (Version 1)
Quarter: 2013Q1

REPORT INFORMATION
  Report Type: Report from Study
  Country: US (occurrence: US)
  Receive Date: 20130131
  Receipt Date: 20130131
  Transmission Date: 20140127
  Serious: No
  Sender: FDA-Public Use
  Company Number: US-ABBOTT-12P-163-0995093-00

PATIENT
  Age: 31 Year
  Sex: Female

DRUGS (8)
  1. HUMIRA [Suspect]
     Indication: CROHN^S DISEASE
     Route: 058
     Dates: start: 20120718
  2. PREDNISONE [Suspect]
     Indication: PRODUCT USED FOR UNKNOWN INDICATION
     Dates: end: 20121010
  3. VITAMIN D3 [Concomitant]
     Indication: PRODUCT USED FOR UNKNOWN INDICATION
  4. VITAMIN C [Concomitant]
     Indication: PRODUCT USED FOR UNKNOWN INDICATION
  5. CALCIUM [Concomitant]
     Indication: PRODUCT USED FOR UNKNOWN INDICATION
  6. MEGA ANTIOXIDANT [Concomitant]
     Indication: PRODUCT USED FOR UNKNOWN INDICATION
     Dosage: DAILY
  7. CHELATED MINERALS [Concomitant]
     Indication: PRODUCT USED FOR UNKNOWN INDICATION
  8. ORTHO TRI-CYCLEN LO [Concomitant]
     Indication: ORAL CONTRACEPTION

REACTIONS (12)
  - Pyrexia [Not Recovered/Not Resolved]
  - Pyrexia [Recovering/Resolving]
  - Sinus congestion [Not Recovered/Not Resolved]
  - Hypertension [Not Recovered/Not Resolved]
  - Ear congestion [Not Recovered/Not Resolved]
  - Productive cough [Not Recovered/Not Resolved]
  - Cough [Recovering/Resolving]
  - Upper respiratory tract congestion [Recovering/Resolving]
  - Injection site bruising [Recovered/Resolved]
  - Injection site pain [Unknown]
  - Bone pain [Unknown]
  - Gait disturbance [Unknown]
